FAERS Safety Report 7476376-8 (Version None)
Quarter: 2011Q2

REPORT INFORMATION
  Report Type: 
  Country: None (occurrence: None)
  Receive Date: 20110512
  Receipt Date: 20110502
  Transmission Date: 20111010
  Serious: Yes (Hospitalization)
  Sender: FDA-Public Use
  Company Number: A0927014A

PATIENT
  Age: 47 Year
  Sex: Male

DRUGS (1)
  1. EPZICOM [Suspect]
     Indication: HIV INFECTION
     Route: 048

REACTIONS (2)
  - RESPIRATORY FAILURE [None]
  - ENDOTRACHEAL INTUBATION [None]
